FAERS Safety Report 4381105-0 (Version None)
Quarter: 2004Q2

REPORT INFORMATION
  Report Type: 
  Country: None (occurrence: None)
  Receive Date: 20040601
  Receipt Date: 20040412
  Transmission Date: 20050107
  Serious: No
  Sender: FDA-Public Use
  Company Number: FABR-10537

PATIENT
  Age: 37 Year
  Sex: Female
  Weight: 47.8 kg

DRUGS (4)
  1. FABRAZYME [Suspect]
     Indication: FABRY'S DISEASE
     Dosage: 70 MG/KG Q2WKS IV
     Route: 042
     Dates: start: 20040106
  2. TYLENOL [Concomitant]
  3. CLARITIN [Concomitant]
  4. KLONOPIN [Concomitant]

REACTIONS (1)
  - CHILLS [None]
